FAERS Safety Report 9915670 (Version 1)
Quarter: 2014Q1

REPORT INFORMATION
  Report Type: Report from Study
  Country: ES (occurrence: ES)
  Receive Date: 20140221
  Receipt Date: 20140221
  Transmission Date: 20141002
  Serious: Yes (Hospitalization, Other)
  Sender: FDA-Public Use
  Company Number: ES-ROCHE-1352321

PATIENT
  Age: 80 Year
  Sex: Female

DRUGS (3)
  1. RANIBIZUMAB [Suspect]
     Indication: PRODUCT USED FOR UNKNOWN INDICATION
     Route: 050
     Dates: start: 20130401, end: 20131113
  2. RANIBIZUMAB [Suspect]
     Route: 050
     Dates: start: 20130624
  3. RANIBIZUMAB [Suspect]
     Route: 050
     Dates: start: 20131113

REACTIONS (2)
  - Cerebral infarction [Recovered/Resolved with Sequelae]
  - Nervous system disorder [Unknown]
